FAERS Safety Report 8560236-5 (Version None)
Quarter: 2012Q3

REPORT INFORMATION
  Report Type: 
  Country: None (occurrence: None)
  Receive Date: 20120802
  Receipt Date: 20120725
  Transmission Date: 20120928
  Serious: Yes (Other)
  Sender: FDA-Public Use
  Company Number: US-ROCHE-1061185

PATIENT
  Sex: Female
  Weight: 62.652 kg

DRUGS (2)
  1. ACCUTANE [Suspect]
     Dates: end: 20030101
  2. ACCUTANE [Suspect]
     Indication: ACNE
     Dates: start: 20020101, end: 20020601

REACTIONS (4)
  - CROHN'S DISEASE [None]
  - ANXIETY [None]
  - IRRITABLE BOWEL SYNDROME [None]
  - INFLAMMATORY BOWEL DISEASE [None]
